FAERS Safety Report 9710989 (Version 2)
Quarter: 2013Q4

REPORT INFORMATION
  Report Type: Spontaneous
  Country: US (occurrence: US)
  Receive Date: 20131126
  Receipt Date: 20131126
  Transmission Date: 20140711
  Serious: No
  Sender: FDA-Public Use
  Company Number: US-BRISTOL-MYERS SQUIBB COMPANY-19098862

PATIENT
  Age: 68 Year
  Sex: Male

DRUGS (1)
  1. BYETTA [Suspect]
     Indication: TYPE 2 DIABETES MELLITUS
     Dosage: DOSE REDUCED TO 5MCG

REACTIONS (2)
  - Constipation [Recovered/Resolved]
  - Blood glucose decreased [Recovered/Resolved]
